FAERS Safety Report 7623801-5 (Version None)
Quarter: 2011Q3

REPORT INFORMATION
  Report Type: 
  Country: None (occurrence: None)
  Receive Date: 20110712
  Receipt Date: 20110701
  Transmission Date: 20111222
  Serious: Yes (Other)
  Sender: FDA-Public Use
  Company Number: GER/GER/11/0018914

PATIENT
  Age: 78 Year
  Sex: Female

DRUGS (2)
  1. CORTISONE ACETATE [Concomitant]
  2. ALENDRONATE SODIUM [Suspect]
     Indication: PRODUCT USED FOR UNKNOWN INDICATION
     Dosage: ORAL
     Route: 048
     Dates: start: 20090101, end: 20100601

REACTIONS (3)
  - PERIODONTITIS [None]
  - TOOTH EXTRACTION [None]
  - OSTEONECROSIS OF JAW [None]
